FAERS Safety Report 4714121-7 (Version None)
Quarter: 2005Q3

REPORT INFORMATION
  Report Type: 
  Country: None (occurrence: None)
  Receive Date: 20050712
  Receipt Date: 20050628
  Transmission Date: 20060218
  Serious: Yes (Other)
  Sender: FDA-Public Use
  Company Number: EWC050544226

PATIENT
  Age: 76 Year
  Sex: Female

DRUGS (4)
  1. FORTEO [Suspect]
     Indication: OSTEOPOROSIS
     Dosage: 20 UG DAY
     Dates: start: 20041001
  2. ASPIRIN [Concomitant]
  3. THYROXIN (LEVOTHYROXINE SODIUM) [Concomitant]
  4. CYANOCOBALAMIN [Concomitant]

REACTIONS (2)
  - GENITAL HAEMORRHAGE [None]
  - UTERINE CANCER [None]
